FAERS Safety Report 5286409-5 (Version None)
Quarter: 2007Q1

REPORT INFORMATION
  Report Type: 
  Country: None (occurrence: None)
  Receive Date: 20070116
  Receipt Date: 20060830
  Transmission Date: 20070707
  Serious: No
  Sender: FDA-Public Use
  Company Number: 2006SP003153

PATIENT
  Age: 82 Year
  Sex: Female
  Weight: 68.4932 kg

DRUGS (9)
  1. LUNESTA [Suspect]
     Indication: INSOMNIA
     Dosage: SEE IMAGE
     Route: 048
     Dates: start: 20060828, end: 20060901
  2. LUNESTA [Suspect]
     Indication: INSOMNIA
     Dosage: SEE IMAGE
     Route: 048
     Dates: start: 20060904
  3. EVISTA [Concomitant]
  4. ESTROGENS [Concomitant]
  5. GARLIC [Concomitant]
  6. VITAMIN CAP [Concomitant]
  7. ASPIRIN [Concomitant]
  8. LYSINE [Concomitant]
  9. ZOLPIDEM TARTRATE [Concomitant]

REACTIONS (3)
  - FEELING JITTERY [None]
  - MIDDLE INSOMNIA [None]
  - NIGHTMARE [None]
